FAERS Safety Report 5066087-0 (Version None)
Quarter: 2006Q3

REPORT INFORMATION
  Report Type: 
  Country: None (occurrence: None)
  Receive Date: 20060725
  Receipt Date: 20060724
  Transmission Date: 20061208
  Serious: Yes (Death)
  Sender: FDA-Public Use
  Company Number: HQWYE615301JUN06

PATIENT
  Sex: Male

DRUGS (4)
  1. CORDARONE [Suspect]
     Indication: ATRIAL FIBRILLATION
     Dosage: 300 MG OVER 1 HOUR AND THAN 900 MG SET UP BUT RUN IN OVER 1 HOUR LATER, INTRAVENOUS
     Route: 042
  2. AMINOPHYLLINE (AMINOPHYLLINE) [Concomitant]
  3. CEFTAZIDIME (CEFTAZIDMINE) [Concomitant]
  4. FLOXACILLIN SODIUM [Concomitant]

REACTIONS (3)
  - BRADYCARDIA [None]
  - CARDIAC ARREST [None]
  - INCORRECT DRUG ADMINISTRATION DURATION [None]
